FAERS Safety Report 16162154 (Version 2)
Quarter: 2021Q3

REPORT INFORMATION
  Report Type: Spontaneous
  Country: US (occurrence: US)
  Receive Date: 20190405
  Receipt Date: 20210709
  Transmission Date: 20211014
  Serious: Yes (Hospitalization, Other)
  Sender: FDA-Public Use
  Company Number: US-PFIZER INC-2019147846

PATIENT
  Age: 80 Year
  Sex: Female

DRUGS (3)
  1. BOSULIF [Suspect]
     Active Substance: BOSUTINIB MONOHYDRATE
     Dosage: 300 MG, 2X/DAY (3 TABLETS BY MOUTH TWICE DAILY THEREAFTER)
     Route: 048
  2. BOSULIF [Suspect]
     Active Substance: BOSUTINIB MONOHYDRATE
     Indication: CHRONIC MYELOID LEUKAEMIA
     Dosage: 100 MG, UNK
     Dates: start: 201803
  3. BOSULIF [Suspect]
     Active Substance: BOSUTINIB MONOHYDRATE
     Dosage: 200 MG, 2X/DAY (2 TABLETS BY MOUTH TWICE DAILY FOR ONE WEEK)
     Route: 048
     Dates: start: 20210701

REACTIONS (3)
  - Pain [Recovering/Resolving]
  - Intentional product misuse [Unknown]
  - Off label use [Unknown]

NARRATIVE: CASE EVENT DATE: 20190330
